FAERS Safety Report 15440060 (Version 2)
Quarter: 2018Q4

REPORT INFORMATION
  Report Type: Spontaneous
  Country: US (occurrence: US)
  Receive Date: 20180928
  Receipt Date: 20181023
  Transmission Date: 20190204
  Serious: No
  Sender: FDA-Public Use
  Company Number: US-PFIZER INC-2018393128

PATIENT
  Sex: Female

DRUGS (1)
  1. VIAGRA [Suspect]
     Active Substance: SILDENAFIL CITRATE
     Indication: RAYNAUD^S PHENOMENON
     Dosage: UNK

REACTIONS (2)
  - Product use in unapproved indication [Unknown]
  - Product use issue [Unknown]
